FAERS Safety Report 4765831-7 (Version None)
Quarter: 2005Q3

REPORT INFORMATION
  Report Type: 
  Country: None (occurrence: None)
  Receive Date: 20050906
  Receipt Date: 20050701
  Transmission Date: 20060218
  Serious: Yes (Hospitalization)
  Sender: FDA-Public Use
  Company Number: URSO 2005-028

PATIENT
  Age: 50 Year
  Sex: Male

DRUGS (7)
  1. URSO TABLETS 50 MG (URSODESOXYCHOLIC ACID) [Suspect]
     Indication: BILIARY CIRRHOSIS PRIMARY
     Dosage: SEE IMAGE
     Route: 048
     Dates: start: 20010522, end: 20010718
  2. URSO TABLETS 50 MG (URSODESOXYCHOLIC ACID) [Suspect]
     Indication: BILIARY CIRRHOSIS PRIMARY
     Dosage: SEE IMAGE
     Route: 048
     Dates: start: 20010709, end: 20010820
  3. URSO TABLETS 50 MG (URSODESOXYCHOLIC ACID) [Suspect]
     Indication: BILIARY CIRRHOSIS PRIMARY
     Dosage: SEE IMAGE
     Route: 048
     Dates: start: 20010821, end: 20011112
  4. URSO TABLETS 50 MG (URSODESOXYCHOLIC ACID) [Suspect]
     Indication: BILIARY CIRRHOSIS PRIMARY
     Dosage: SEE IMAGE
     Route: 048
     Dates: start: 20011113
  5. PREDNISOLONE (PREDONINE) [Concomitant]
  6. CALCIUM 1-ASPARTATE (ASPARA-CA) [Concomitant]
  7. MERCAZOLE (THIAMAZOLE) [Suspect]

REACTIONS (12)
  - ACQUIRED HYDROCELE [None]
  - BASEDOW'S DISEASE [None]
  - DIABETES MELLITUS [None]
  - HEPATIC FUNCTION ABNORMAL [None]
  - HYPOAESTHESIA [None]
  - LIVER DISORDER [None]
  - MULTIPLE SCLEROSIS [None]
  - PLATELET COUNT DECREASED [None]
  - RED BLOOD CELL COUNT DECREASED [None]
  - TESTICULAR SWELLING [None]
  - THYROIDITIS CHRONIC [None]
  - UROBILIN URINE PRESENT [None]
